FAERS Safety Report 7001827-2 (Version None)
Quarter: 2010Q3

REPORT INFORMATION
  Report Type: 
  Country: None (occurrence: None)
  Receive Date: 20100920
  Receipt Date: 20100621
  Transmission Date: 20110219
  Serious: No
  Sender: FDA-Public Use
  Company Number: US-ASTRAZENECA-2010SE15708

PATIENT
  Age: 20 Year
  Sex: Female

DRUGS (4)
  1. SEROQUEL XR [Suspect]
     Indication: SCHIZOAFFECTIVE DISORDER
     Route: 048
  2. REMERON [Concomitant]
  3. RISPERDAL [Concomitant]
  4. UKNOWN OTHER MEDICATION [Concomitant]

REACTIONS (1)
  - HYPERTENSION [None]
